FAERS Safety Report 24962312 (Version 2)
Quarter: 2025Q1

REPORT INFORMATION
  Report Type: Spontaneous
  Country: JP (occurrence: JP)
  Receive Date: 20250212
  Receipt Date: 20250217
  Transmission Date: 20250409
  Serious: Yes (Life-Threatening)
  Sender: ELI LILLY AND COMPANY
  Company Number: JP-NShinyaku-EVA202407879ZZLILLY

PATIENT
  Age: 2 Year
  Sex: Female

DRUGS (2)
  1. TADALAFIL [Suspect]
     Active Substance: TADALAFIL
     Indication: Pulmonary arterial hypertension
     Dosage: 3 MG, DAILY
     Route: 048
  2. OPSUMIT [Suspect]
     Active Substance: MACITENTAN
     Indication: Pulmonary arterial hypertension
     Dosage: 1.2 MG, DAILY
     Route: 048

REACTIONS (3)
  - Protein-losing gastroenteropathy [Recovered/Resolved]
  - Lymphoedema [Recovering/Resolving]
  - Off label use [Unknown]
